FAERS Safety Report 9281397 (Version 1)
Quarter: 2013Q2

REPORT INFORMATION
  Report Type: Spontaneous
  Country: US (occurrence: US)
  Receive Date: 20130509
  Receipt Date: 20130509
  Transmission Date: 20140414
  Serious: No
  Sender: FDA-Public Use
  Company Number: US-ROXANE LABORATORIES, INC.-2013-RO-00731RO

PATIENT
  Sex: Female

DRUGS (1)
  1. BALSALAZIDE [Suspect]

REACTIONS (2)
  - Pharyngeal oedema [Unknown]
  - Gastrooesophageal reflux disease [Unknown]
